FAERS Safety Report 7182587-1 (Version None)
Quarter: 2010Q4

REPORT INFORMATION
  Report Type: 
  Country: None (occurrence: None)
  Receive Date: 20101221
  Receipt Date: 20100517
  Transmission Date: 20110411
  Serious: Yes (Hospitalization)
  Sender: FDA-Public Use
  Company Number: US-AMGEN-KDL413000

PATIENT

DRUGS (2)
  1. ENBREL [Suspect]
     Indication: PSORIATIC ARTHROPATHY
     Dosage: 50 MG, 2 TIMES/WK
     Route: 058
  2. ENBREL [Suspect]
     Indication: PSORIASIS

REACTIONS (7)
  - ARTHRALGIA [None]
  - INJECTION SITE PAIN [None]
  - INJECTION SITE PRURITUS [None]
  - INJECTION SITE SWELLING [None]
  - PSORIATIC ARTHROPATHY [None]
  - SHOCK [None]
  - THYROID CANCER [None]
